FAERS Safety Report 6770935-3 (Version None)
Quarter: 2010Q2

REPORT INFORMATION
  Report Type: 
  Country: None (occurrence: None)
  Receive Date: 20100616
  Receipt Date: 20100609
  Transmission Date: 20101027
  Serious: Yes (Hospitalization)
  Sender: FDA-Public Use
  Company Number: US-BIOGENIDEC-2010BI017634

PATIENT
  Age: 39 Year
  Sex: Female

DRUGS (3)
  1. AVONEX [Suspect]
     Indication: MULTIPLE SCLEROSIS
     Route: 030
     Dates: end: 20040412
  2. AVONEX [Suspect]
     Route: 030
     Dates: start: 20081011, end: 20090614
  3. AVONEX [Suspect]
     Route: 030
     Dates: start: 20100603

REACTIONS (1)
  - VISUAL IMPAIRMENT [None]
